FAERS Safety Report 7220190-5 (Version None)
Quarter: 2011Q1

REPORT INFORMATION
  Report Type: 
  Country: None (occurrence: None)
  Receive Date: 20110111
  Receipt Date: 20110104
  Transmission Date: 20110831
  Serious: Yes (Other)
  Sender: FDA-Public Use
  Company Number: US-US-EMD SERONO, INC.-7034509

PATIENT
  Sex: Female
  Weight: 71 kg

DRUGS (2)
  1. REBIF [Suspect]
     Indication: MULTIPLE SCLEROSIS
     Route: 058
     Dates: start: 20060210
  2. ALLERGY INJECTIONS [Concomitant]
     Indication: HYPERSENSITIVITY
     Dates: start: 19970101

REACTIONS (4)
  - INJECTION SITE PAIN [None]
  - HEPATOBILIARY SCAN ABNORMAL [None]
  - INJECTION SITE INDURATION [None]
  - PRECANCEROUS CELLS PRESENT [None]
